FAERS Safety Report 9830621 (Version 4)
Quarter: 2014Q1

REPORT INFORMATION
  Report Type: Spontaneous
  Country: US (occurrence: US)
  Receive Date: 20140120
  Receipt Date: 20140226
  Transmission Date: 20141002
  Serious: No
  Sender: FDA-Public Use
  Company Number: US-GILEAD-2014-0092373

PATIENT
  Sex: Female

DRUGS (3)
  1. LETAIRIS [Suspect]
     Indication: PRODUCT USED FOR UNKNOWN INDICATION
     Dosage: 5 MG, QD
     Route: 065
     Dates: start: 20120911
  2. TYVASO [Concomitant]
  3. REVATIO [Concomitant]

REACTIONS (11)
  - Syncope [Unknown]
  - Malaise [Unknown]
  - Diarrhoea [Unknown]
  - Unevaluable event [Unknown]
  - Urinary incontinence [Unknown]
  - Pyrexia [Unknown]
  - Productive cough [Unknown]
  - Malaise [Unknown]
  - Feeling of body temperature change [Unknown]
  - Vomiting [Unknown]
  - Headache [Unknown]
